FAERS Safety Report 21691433 (Version 1)
Quarter: 2022Q4

REPORT INFORMATION
  Report Type: Other
  Country: IN (occurrence: None)
  Receive Date: 20221207
  Receipt Date: 20221207
  Transmission Date: 20230112
  Serious: Yes (Other)
  Sender: FDA-Public Use
  Company Number: IN-ROCHE-3230675

PATIENT
  Age: 14 Year
  Sex: Male

DRUGS (1)
  1. HEMLIBRA [Suspect]
     Active Substance: EMICIZUMAB-KXWH
     Indication: Factor VIII deficiency
     Route: 058

REACTIONS (2)
  - Injury [Unknown]
  - Internal haemorrhage [Unknown]
